FAERS Safety Report 6960748-1 (Version None)
Quarter: 2010Q3

REPORT INFORMATION
  Report Type: 
  Country: None (occurrence: None)
  Receive Date: 20100901
  Receipt Date: 20100819
  Transmission Date: 20110219
  Serious: Yes (Other)
  Sender: FDA-Public Use
  Company Number: GB-ROCHE-722806

PATIENT
  Sex: Female

DRUGS (1)
  1. OSELTAMIVIR [Suspect]
     Indication: H1N1 INFLUENZA
     Dosage: ROUTE: ORAL OR NASOGASTRIC TUBE
     Route: 065

REACTIONS (5)
  - ABORTION INDUCED [None]
  - ABORTION SPONTANEOUS [None]
  - LIVE BIRTH [None]
  - PREGNANCY [None]
  - STILLBIRTH [None]
